FAERS Safety Report 8596837-8 (Version None)
Quarter: 2012Q3

REPORT INFORMATION
  Report Type: 
  Country: None (occurrence: None)
  Receive Date: 20120815
  Receipt Date: 20120810
  Transmission Date: 20120928
  Serious: Yes (Hospitalization)
  Sender: FDA-Public Use
  Company Number: US-PFIZER INC-US-WYE-H14414910

PATIENT
  Age: 72 Year
  Sex: Female
  Weight: 69 kg

DRUGS (17)
  1. EXELON [Concomitant]
     Indication: DEMENTIA ALZHEIMER'S TYPE
     Dosage: 9.5 MG, 1X/DAY
     Route: 062
     Dates: start: 20071029
  2. CALTRATE 600+D [Concomitant]
  3. BAPINEUZUMAB [Suspect]
     Indication: DEMENTIA ALZHEIMER'S TYPE
     Dosage: 0.5 MG/KG, SINGLE
     Route: 051
     Dates: start: 20080911, end: 20080911
  4. BAPINEUZUMAB [Suspect]
     Dosage: 0.5 MG/KG, SINGLE
     Route: 051
     Dates: start: 20081209, end: 20081209
  5. BAPINEUZUMAB [Suspect]
     Dosage: 0.5 MG/KG, SINGLE
     Route: 051
     Dates: start: 20090917, end: 20090917
  6. ASPIRIN [Concomitant]
     Indication: PROPHYLAXIS
     Dosage: 325 MG, 1X/DAY
     Route: 048
     Dates: start: 20070412
  7. BAPINEUZUMAB [Suspect]
     Dosage: 0.5 MG/KG, SINGLE
     Route: 051
     Dates: start: 20090605, end: 20090605
  8. BAPINEUZUMAB [Suspect]
     Dosage: 0.5 MG/KG, SINGLE
     Route: 051
     Dates: start: 20091210, end: 20091210
  9. VITAMIN B COMPLEX CAP [Concomitant]
  10. NAPROXEN [Concomitant]
     Indication: ARTHRALGIA
     Dosage: 375 MG, AS NEEDED
     Route: 048
     Dates: start: 20071029
  11. BAPINEUZUMAB [Suspect]
     Dosage: 0.5 MG/KG, SINGLE
     Route: 051
     Dates: start: 20090313, end: 20090313
  12. NAMENDA [Concomitant]
     Indication: DEMENTIA ALZHEIMER'S TYPE
     Dosage: 10 MG, 1X/DAY
     Route: 048
     Dates: start: 20060501
  13. MULTI-VITAMINS [Concomitant]
     Indication: SUPPLEMENTATION THERAPY
     Dosage: 1 TAB, DAILY
     Route: 048
     Dates: start: 20070412
  14. ASCORBIC ACID [Concomitant]
  15. VERAPAMIL HCL [Suspect]
     Indication: HYPERTENSION
     Dosage: 240 MG,1X/DAY
     Route: 048
     Dates: start: 20070412, end: 20100401
  16. LOVAZA [Concomitant]
     Indication: SUPPLEMENTATION THERAPY
     Dosage: 1 TAB DAILY
     Route: 048
  17. COZAAR [Concomitant]
     Indication: HYPERTENSION
     Dosage: 50 MG, 1X/DAY
     Route: 048
     Dates: start: 20090707

REACTIONS (2)
  - PRESYNCOPE [None]
  - ORTHOSTATIC HYPOTENSION [None]
